FAERS Safety Report 20339751 (Version 1)
Quarter: 2022Q1

REPORT INFORMATION
  Report Type: Spontaneous
  Country: US (occurrence: US)
  Receive Date: 20220117
  Receipt Date: 20220117
  Transmission Date: 20220423
  Serious: No
  Sender: FDA-Public Use
  Company Number: US-RISINGPHARMA-US-2022RISSPO00013

PATIENT
  Age: 62 Year
  Sex: Female

DRUGS (6)
  1. FAMOTIDINE [Suspect]
     Active Substance: FAMOTIDINE
     Indication: Product used for unknown indication
     Route: 065
     Dates: end: 2021
  2. URSODIOL [Concomitant]
     Active Substance: URSODIOL
     Indication: Product used for unknown indication
     Route: 065
  3. CHOLESTYRAMINE [Concomitant]
     Active Substance: CHOLESTYRAMINE
     Indication: Product used for unknown indication
     Route: 065
  4. OCALIVA [Concomitant]
     Active Substance: OBETICHOLIC ACID
     Indication: Primary biliary cholangitis
     Route: 048
     Dates: start: 20190729
  5. OCALIVA [Concomitant]
     Active Substance: OBETICHOLIC ACID
     Route: 048
     Dates: start: 2020
  6. OCALIVA [Concomitant]
     Active Substance: OBETICHOLIC ACID
     Route: 048
     Dates: start: 202101

REACTIONS (1)
  - Constipation [Recovered/Resolved]

NARRATIVE: CASE EVENT DATE: 20210101
